FAERS Safety Report 4405958-2 (Version None)
Quarter: 2004Q3

REPORT INFORMATION
  Report Type: 
  Country: None (occurrence: None)
  Receive Date: 20040723
  Receipt Date: 20040220
  Transmission Date: 20050211
  Serious: No
  Sender: FDA-Public Use
  Company Number: US-GLAXOSMITHKLINE-A0499209A

PATIENT
  Age: 50 Year
  Sex: Female

DRUGS (9)
  1. AVANDIA [Suspect]
     Dosage: 4MG PER DAY
     Route: 048
     Dates: start: 20040212
  2. HYZAAR [Concomitant]
  3. DEMADEX [Concomitant]
  4. LANTUS [Concomitant]
  5. GLUCOPHAGE [Concomitant]
  6. MULTI-VITAMIN [Concomitant]
  7. VITAMIN E [Concomitant]
  8. OMEGA 3 [Concomitant]
  9. CALCIUM [Concomitant]

REACTIONS (4)
  - BLOOD POTASSIUM INCREASED [None]
  - HEADACHE [None]
  - OEDEMA PERIPHERAL [None]
  - WEIGHT INCREASED [None]
